FAERS Safety Report 21259877 (Version 1)
Quarter: 2022Q3

REPORT INFORMATION
  Report Type: Spontaneous
  Country: FR (occurrence: None)
  Receive Date: 20220826
  Receipt Date: 20220826
  Transmission Date: 20221027
  Serious: Yes (Other)
  Sender: FDA-Public Use
  Company Number: FR-Merck Healthcare KGaA-9344516

PATIENT
  Sex: Female

DRUGS (1)
  1. LEVOTHYROXINE [Suspect]
     Active Substance: LEVOTHYROXINE
     Indication: Product used for unknown indication

REACTIONS (11)
  - Blindness [Unknown]
  - Fatigue [Unknown]
  - Myalgia [Unknown]
  - Depression [Unknown]
  - Disturbance in attention [Unknown]
  - Loss of libido [Unknown]
  - Alopecia [Unknown]
  - Abdominal distension [Unknown]
  - Weight increased [Unknown]
  - Pruritus [Unknown]
  - Palpitations [Unknown]
